FAERS Safety Report 16836754 (Version 2)
Quarter: 2019Q4

REPORT INFORMATION
  Report Type: Spontaneous
  Country: CA (occurrence: CA)
  Receive Date: 20190922
  Receipt Date: 20191008
  Transmission Date: 20200122
  Serious: Yes (Hospitalization, Other)
  Sender: FDA-Public Use
  Company Number: CA-CELLTRION INC.-2018CA020911

PATIENT

DRUGS (24)
  1. INFLECTRA [Suspect]
     Active Substance: INFLIXIMAB-DYYB
     Dosage: 500 MG, (WEEKS 0, 2, 6 AND Q 8 WEEKS THEREAFTER)
     Route: 042
     Dates: start: 20190222
  2. PENTASA [Concomitant]
     Active Substance: MESALAMINE
     Dosage: UNK
     Route: 065
  3. HYDROCORTISONE. [Concomitant]
     Active Substance: HYDROCORTISONE
     Dosage: 100 MG, UNK
     Route: 042
     Dates: start: 20181002
  4. INFLECTRA [Suspect]
     Active Substance: INFLIXIMAB-DYYB
     Dosage: 500 MG, (WEEKS 0, 2, 6 AND Q 8 WEEKS THEREAFTER)
     Route: 042
     Dates: start: 20190422
  5. SALOFALK GR [Concomitant]
     Dosage: UNK
     Route: 065
  6. INFLECTRA [Suspect]
     Active Substance: INFLIXIMAB-DYYB
     Indication: COLITIS ULCERATIVE
     Dosage: 500 MG, (WEEKS 0, 2, 6 AND Q 8 WEEKS THEREAFTER)
     Route: 042
     Dates: start: 20180917
  7. AMLODIPINE [Concomitant]
     Active Substance: AMLODIPINE BESYLATE
     Dosage: UNK
     Route: 065
  8. ACETAMINOPHEN. [Concomitant]
     Active Substance: ACETAMINOPHEN
     Indication: PREMEDICATION
     Dosage: 650 MG, UNK
     Route: 048
     Dates: start: 20180917
  9. DIPHENHYDRAMINE. [Concomitant]
     Active Substance: DIPHENHYDRAMINE
     Indication: PREMEDICATION
     Dosage: 50 MG, UNK
     Route: 048
     Dates: start: 20180917
  10. INFLECTRA [Suspect]
     Active Substance: INFLIXIMAB-DYYB
     Dosage: 500 MG, (WEEKS 0, 2, 6 AND Q 8 WEEKS THEREAFTER)
     Route: 042
     Dates: start: 20181029
  11. INFLECTRA [Suspect]
     Active Substance: INFLIXIMAB-DYYB
     Dosage: 500 MG, (WEEKS 0, 2, 6 AND Q 8 WEEKS THEREAFTER)
     Route: 042
     Dates: start: 20190222
  12. INFLECTRA [Suspect]
     Active Substance: INFLIXIMAB-DYYB
     Dosage: 500 MG, (WEEKS 0, 2, 6 AND Q 8 WEEKS THEREAFTER)
     Route: 042
     Dates: start: 20190924
  13. INFLECTRA [Suspect]
     Active Substance: INFLIXIMAB-DYYB
     Dosage: 500 MG, (WEEKS 0, 2, 6 AND Q 8 WEEKS THEREAFTER)
     Route: 042
     Dates: start: 20181231
  14. INFLECTRA [Suspect]
     Active Substance: INFLIXIMAB-DYYB
     Dosage: 500 MG, (WEEKS 0, 2, 6 AND Q 8 WEEKS THEREAFTER)
     Route: 042
     Dates: start: 20181231
  15. INFLECTRA [Suspect]
     Active Substance: INFLIXIMAB-DYYB
     Dosage: 500 MG, (WEEKS 0, 2, 6 AND Q 8 WEEKS THEREAFTER)
     Route: 042
     Dates: start: 20190731
  16. ACETAMINOPHEN. [Concomitant]
     Active Substance: ACETAMINOPHEN
     Dosage: 650 MG, UNK
     Route: 048
     Dates: start: 20181002
  17. INFLECTRA [Suspect]
     Active Substance: INFLIXIMAB-DYYB
     Dosage: 500 MG, (WEEKS 0, 2, 6 AND Q 8 WEEKS THEREAFTER)
     Route: 042
     Dates: start: 20190222
  18. AZATHIOPRINE. [Concomitant]
     Active Substance: AZATHIOPRINE
     Dosage: UNK
     Route: 065
  19. HYDROCORTISONE. [Concomitant]
     Active Substance: HYDROCORTISONE
     Indication: PREMEDICATION
     Dosage: 100 MG, UNK
     Route: 042
     Dates: start: 20180917
  20. INFLECTRA [Suspect]
     Active Substance: INFLIXIMAB-DYYB
     Dosage: UNK
     Route: 042
     Dates: start: 20181002
  21. INFLECTRA [Suspect]
     Active Substance: INFLIXIMAB-DYYB
     Dosage: 500 MG, (WEEKS 0, 2, 6 AND Q 8 WEEKS THEREAFTER)
     Route: 042
     Dates: start: 20190422
  22. INFLECTRA [Suspect]
     Active Substance: INFLIXIMAB-DYYB
     Dosage: 500 MG, (WEEKS 0, 2, 6 AND Q 8 WEEKS THEREAFTER)
     Route: 042
     Dates: start: 20190422
  23. SYNTHROID [Concomitant]
     Active Substance: LEVOTHYROXINE SODIUM
     Dosage: UNK
     Route: 065
  24. DIPHENHYDRAMINE. [Concomitant]
     Active Substance: DIPHENHYDRAMINE
     Dosage: 50 MG, UNK
     Route: 042
     Dates: start: 20181002

REACTIONS (3)
  - Blood pressure fluctuation [Unknown]
  - Cerebrovascular accident [Unknown]
  - Scrotal mass [Unknown]

NARRATIVE: CASE EVENT DATE: 20180917
